FAERS Safety Report 5085412-8 (Version None)
Quarter: 2006Q3

REPORT INFORMATION
  Report Type: 
  Country: None (occurrence: None)
  Receive Date: 20060822
  Receipt Date: 20060815
  Transmission Date: 20061208
  Serious: Yes (Other)
  Sender: FDA-Public Use
  Company Number: US-AVENTIS-200616780US

PATIENT
  Sex: Female

DRUGS (1)
  1. CLOMID [Suspect]
     Dosage: DOSE: 50-100
     Route: 048
     Dates: start: 20030201, end: 20030101

REACTIONS (1)
  - RETINAL EXUDATES [None]
